FAERS Safety Report 4940369-2 (Version None)
Quarter: 2006Q1

REPORT INFORMATION
  Report Type: 
  Country: None (occurrence: None)
  Receive Date: 20060310
  Receipt Date: 20060301
  Transmission Date: 20060701
  Serious: Yes (Hospitalization)
  Sender: FDA-Public Use
  Company Number: US-MERCK-0603USA00889

PATIENT
  Age: 43 Year
  Sex: Male
  Weight: 90 kg

DRUGS (8)
  1. VIOXX [Suspect]
     Indication: BACK PAIN
     Route: 048
     Dates: start: 20020314, end: 20020317
  2. VIOXX [Suspect]
     Route: 048
     Dates: start: 20020318, end: 20020401
  3. VIOXX [Suspect]
     Indication: BACK INJURY
     Route: 048
     Dates: start: 20020314, end: 20020317
  4. VIOXX [Suspect]
     Route: 048
     Dates: start: 20020318, end: 20020401
  5. ZANAFLEX [Concomitant]
     Route: 048
     Dates: start: 20020301, end: 20020313
  6. ZANAFLEX [Concomitant]
     Route: 048
     Dates: start: 20020314
  7. TYLENOL (CAPLET) [Concomitant]
     Indication: PAIN
     Route: 065
     Dates: start: 20020301
  8. BEXTRA [Concomitant]
     Route: 065

REACTIONS (7)
  - ACUTE MYOCARDIAL INFARCTION [None]
  - ANGINA PECTORIS [None]
  - ARTERIOSCLEROSIS CORONARY ARTERY [None]
  - CORONARY ARTERY THROMBOSIS [None]
  - HYPERCHOLESTEROLAEMIA [None]
  - NON-CARDIAC CHEST PAIN [None]
  - SMALL INTESTINAL OBSTRUCTION [None]
